FAERS Safety Report 24081477 (Version 3)
Quarter: 2024Q3

REPORT INFORMATION
  Report Type: Spontaneous
  Country: US (occurrence: US)
  Receive Date: 20240712
  Receipt Date: 20240730
  Transmission Date: 20241017
  Serious: Yes (Hospitalization, Other)
  Sender: ABBVIE
  Company Number: US-ABBVIE-5834789

PATIENT
  Sex: Female
  Weight: 55 kg

DRUGS (17)
  1. VENCLEXTA [Suspect]
     Active Substance: VENETOCLAX
     Indication: Acute myeloid leukaemia
     Dosage: FORM STRENGTH: 200 MILLIGRAM
     Route: 048
     Dates: start: 20240226, end: 20240506
  2. KEPPRA [Concomitant]
     Active Substance: LEVETIRACETAM
     Indication: Seizure
  3. AZACITIDINE [Suspect]
     Active Substance: AZACITIDINE
     Indication: Acute myeloid leukaemia
     Route: 065
     Dates: end: 20240506
  4. LOMOTIL [Concomitant]
     Active Substance: ATROPINE SULFATE\DIPHENOXYLATE HYDROCHLORIDE
     Indication: Diarrhoea
  5. LISINOPRIL [Concomitant]
     Active Substance: LISINOPRIL
     Indication: Hypertension
  6. HUMALOG [Concomitant]
     Active Substance: INSULIN LISPRO
     Indication: Type 2 diabetes mellitus
  7. JARDIANCE [Concomitant]
     Active Substance: EMPAGLIFLOZIN
     Indication: Type 2 diabetes mellitus
  8. OMEPRAZOLE [Concomitant]
     Active Substance: OMEPRAZOLE
     Indication: Product used for unknown indication
  9. INSULIN NOS [Concomitant]
     Active Substance: INSULIN NOS
     Indication: Type 2 diabetes mellitus
     Dosage: LONG ACTING
  10. POTASSIUM [Concomitant]
     Active Substance: POTASSIUM
     Indication: Mineral supplementation
  11. CALCIUM [Concomitant]
     Active Substance: CALCIUM
     Indication: Mineral supplementation
  12. SYNTHROID [Concomitant]
     Active Substance: LEVOTHYROXINE SODIUM
     Indication: Thyroid disorder
  13. MAGNESIUM [Concomitant]
     Active Substance: MAGNESIUM
     Indication: Mineral supplementation
  14. FLUCONAZOLE [Concomitant]
     Active Substance: FLUCONAZOLE
     Indication: Acute myeloid leukaemia
  15. CIPROFLOXACIN [Concomitant]
     Active Substance: CIPROFLOXACIN
     Indication: Acute myeloid leukaemia
  16. ACYCLOVIR [Concomitant]
     Active Substance: ACYCLOVIR
     Indication: Acute myeloid leukaemia
  17. LUNESTA [Concomitant]
     Active Substance: ESZOPICLONE
     Indication: Sleep disorder

REACTIONS (8)
  - Cerebral haemorrhage [Recovered/Resolved]
  - Contusion [Recovered/Resolved]
  - Dizziness [Not Recovered/Not Resolved]
  - White blood cell count abnormal [Recovering/Resolving]
  - Tunnel vision [Recovered/Resolved]
  - Confusional state [Not Recovered/Not Resolved]
  - Platelet count decreased [Not Recovered/Not Resolved]
  - Fall [Recovered/Resolved]

NARRATIVE: CASE EVENT DATE: 20240101
